FAERS Safety Report 25409339 (Version 1)
Quarter: 2025Q2

REPORT INFORMATION
  Report Type: Spontaneous
  Country: US (occurrence: US)
  Receive Date: 20250607
  Receipt Date: 20250607
  Transmission Date: 20250717
  Serious: No
  Sender: RIGEL PHARMACEUTICALS
  Company Number: US-RIGEL PHARMACEUTICALS, INC.-20241100028

PATIENT
  Sex: Female
  Weight: 56.245 kg

DRUGS (1)
  1. TAVALISSE [Suspect]
     Active Substance: FOSTAMATINIB
     Indication: Immune thrombocytopenia
     Dosage: 150 MILLIGRAM, BID; ALTERNATING 1 TABLET BY MOUTH DAILY IF NEEDED.
     Route: 048

REACTIONS (2)
  - Blood pressure increased [Unknown]
  - Product prescribing issue [Unknown]
